FAERS Safety Report 4591282-4 (Version None)
Quarter: 2005Q1

REPORT INFORMATION
  Report Type: 
  Country: None (occurrence: None)
  Receive Date: 20050224
  Receipt Date: 20050224
  Transmission Date: 20050727
  Serious: Yes (Death)
  Sender: FDA-Public Use
  Company Number: None

PATIENT
  Age: 58 Year
  Sex: Female
  Weight: 110 kg

DRUGS (4)
  1. HERCEPTIN [Suspect]
     Dosage: 4 MG/KG= 220 MG IV
     Route: 042
     Dates: start: 20050111
  2. HERCEPTIN [Suspect]
     Dosage: 4 MG/KG= 220 MG IV
     Route: 042
     Dates: start: 20050118
  3. HERCEPTIN [Suspect]
     Dosage: 4 MG/KG= 220 MG IV
     Route: 042
     Dates: start: 20050125
  4. HERCEPTIN [Suspect]
     Dosage: 4 MG/KG= 220 MG IV
     Route: 042
     Dates: start: 20050201

REACTIONS (4)
  - CARDIO-RESPIRATORY ARREST [None]
  - COMA [None]
  - DISEASE PROGRESSION [None]
  - FATIGUE [None]
